FAERS Safety Report 7731853 (Version 3)
Quarter: 2012Q4

REPORT INFORMATION
  Report Type: 
  Country: US (occurrence: US)
  Receive Date: 20101222
  Receipt Date: 20121204
  Transmission Date: 20130627
  Serious: No
  Sender: FDA-Public Use
  Company Number: US-AMGEN-KDL425836

PATIENT
  Sex: Male

DRUGS (2)
  1. ENBREL [Suspect]
     Indication: PSORIATIC ARTHROPATHY
     Dosage: 50 mg, qwk
     Route: 058
     Dates: start: 20090113
  2. METHOTREXATE [Concomitant]
     Dosage: UNK

REACTIONS (12)
  - Tooth fracture [Unknown]
  - Tooth disorder [Unknown]
  - Pain in extremity [Recovered/Resolved]
  - Gait disturbance [Unknown]
  - Bunion [Unknown]
  - Ingrowing nail [Unknown]
  - Hyperkeratosis [Unknown]
  - Musculoskeletal stiffness [Unknown]
  - Joint destruction [Not Recovered/Not Resolved]
  - Procedural pain [Not Recovered/Not Resolved]
  - Post procedural complication [Recovered/Resolved]
  - Foot deformity [Recovered/Resolved]
